FAERS Safety Report 8319614-1 (Version None)
Quarter: 2012Q2

REPORT INFORMATION
  Report Type: 
  Country: None (occurrence: None)
  Receive Date: 20120427
  Receipt Date: 20120420
  Transmission Date: 20120825
  Serious: Yes (Other)
  Sender: FDA-Public Use
  Company Number: PHEH2012US008491

PATIENT
  Sex: Female

DRUGS (5)
  1. WARFARIN SODIUM [Concomitant]
     Dosage: UNK
  2. NORVASC [Concomitant]
     Dosage: UNK
  3. SOTALOL HCL [Concomitant]
     Dosage: UNK
  4. DIOVAN [Suspect]
     Dosage: 320 MG, UNK
  5. ATORVASTATIN [Suspect]
     Dosage: UNK

REACTIONS (3)
  - FALL [None]
  - HIP FRACTURE [None]
  - ALOPECIA [None]
